FAERS Safety Report 15457712 (Version 1)
Quarter: 2018Q4

REPORT INFORMATION
  Report Type: Spontaneous
  Country: IT (occurrence: IT)
  Receive Date: 20181003
  Receipt Date: 20181003
  Transmission Date: 20190204
  Serious: Yes (Hospitalization)
  Sender: FDA-Public Use
  Company Number: IT-TEVA-2018-IT-960180

PATIENT
  Age: 84 Year
  Sex: Female

DRUGS (6)
  1. TICLOPIDINA [Concomitant]
     Active Substance: TICLOPIDINE
  2. CIPROFLOXACIN. [Suspect]
     Active Substance: CIPROFLOXACIN
     Dosage: 1000 MILLIGRAM DAILY;
     Route: 048
     Dates: start: 20080404, end: 20080410
  3. TORASEMIDE [Concomitant]
     Active Substance: TORSEMIDE
  4. ALLOPURINOLO [Concomitant]
     Active Substance: ALLOPURINOL
  5. IDROCLOROTIAZIDE [Concomitant]
     Active Substance: HYDROCHLOROTHIAZIDE
  6. VALSARTAN. [Concomitant]
     Active Substance: VALSARTAN

REACTIONS (1)
  - Vascular purpura [Not Recovered/Not Resolved]

NARRATIVE: CASE EVENT DATE: 20080412
